FAERS Safety Report 6317585-0 (Version None)
Quarter: 2009Q3

REPORT INFORMATION
  Report Type: 
  Country: None (occurrence: None)
  Receive Date: 20090821
  Receipt Date: 20090814
  Transmission Date: 20100115
  Serious: Yes (Other)
  Sender: FDA-Public Use
  Company Number: NL-ROCHE-650505

PATIENT
  Age: 58 Year
  Sex: Female

DRUGS (2)
  1. XELODA [Suspect]
     Indication: DRUG USE FOR UNKNOWN INDICATION
     Dosage: STARTED 2 WEEKS AFTER LAST TREATMENT WITH FOLFOX
     Route: 065
  2. OXALIPLATIN [Suspect]
     Indication: DRUG USE FOR UNKNOWN INDICATION
     Dosage: STARTED 2 WEEKS AFTER LAST TREATMENT WITH FOLFOX
     Route: 065

REACTIONS (1)
  - GASTROINTESTINAL TOXICITY [None]
